FAERS Safety Report 16872895 (Version 2)
Quarter: 2019Q4

REPORT INFORMATION
  Report Type: Spontaneous
  Country: US (occurrence: US)
  Receive Date: 20191001
  Receipt Date: 20191016
  Transmission Date: 20200122
  Serious: Yes (Other)
  Sender: FDA-Public Use
  Company Number: US-BAYER-2019-174208

PATIENT
  Age: 29 Year
  Sex: Female
  Weight: 82.54 kg

DRUGS (4)
  1. MIRENA [Suspect]
     Active Substance: LEVONORGESTREL
     Indication: METRORRHAGIA
  2. MIRENA [Suspect]
     Active Substance: LEVONORGESTREL
     Indication: CONTRACEPTION
     Dosage: 20 MCG/24HR, CONT
     Route: 015
     Dates: start: 20190710, end: 20190829
  3. MIRENA [Suspect]
     Active Substance: LEVONORGESTREL
     Indication: CONTRACEPTION
  4. MIRENA [Suspect]
     Active Substance: LEVONORGESTREL
     Indication: METRORRHAGIA

REACTIONS (4)
  - Abdominal pain lower [Recovering/Resolving]
  - Genital haemorrhage [Recovering/Resolving]
  - Embedded device [Recovered/Resolved]
  - Abdominal pain [Recovering/Resolving]

NARRATIVE: CASE EVENT DATE: 20190829
